FAERS Safety Report 10881834 (Version 1)
Quarter: 2015Q1

REPORT INFORMATION
  Report Type: Report from Study
  Country: AU (occurrence: AT)
  Receive Date: 20150303
  Receipt Date: 20150303
  Transmission Date: 20150721
  Serious: Yes (Death, Other)
  Sender: FDA-Public Use
  Company Number: AU-BAYER-2015-030221

PATIENT
  Age: 75 Year
  Sex: Male

DRUGS (8)
  1. DOXAZOSIN [Concomitant]
     Active Substance: DOXAZOSIN\DOXAZOSIN MESYLATE
  2. ZOLEDRONIC ACID [Concomitant]
     Active Substance: ZOLEDRONIC ACID
  3. SORAFENIB [Suspect]
     Active Substance: SORAFENIB
  4. SUNITINIB [Suspect]
     Active Substance: SUNITINIB
  5. ALLOPURINOL. [Concomitant]
     Active Substance: ALLOPURINOL
  6. TEMSIROLIMUS [Suspect]
     Active Substance: TEMSIROLIMUS
  7. PARACETAMOL [Concomitant]
     Active Substance: ACETAMINOPHEN
  8. RAMIPRIL. [Concomitant]
     Active Substance: RAMIPRIL

REACTIONS (14)
  - Azotaemia [None]
  - Pericardial effusion [None]
  - Stomatitis [None]
  - Bradycardia [None]
  - Hypotension [None]
  - Troponin increased [Fatal]
  - Dyspnoea [None]
  - Fatigue [None]
  - Ascites [None]
  - Trigeminal neuralgia [None]
  - Myocardial infarction [Fatal]
  - Cardiac arrest [Fatal]
  - Arrhythmia [None]
  - Decreased appetite [None]
